FAERS Safety Report 5657793-5 (Version None)
Quarter: 2008Q1

REPORT INFORMATION
  Report Type: 
  Country: None (occurrence: None)
  Receive Date: 20080310
  Receipt Date: 20070508
  Transmission Date: 20080703
  Serious: No
  Sender: FDA-Public Use
  Company Number: US-ASTRAZENECA-2007UW06305

PATIENT
  Age: 74 Year
  Sex: Male

DRUGS (1)
  1. LISINOPRIL [Suspect]
     Indication: PROSTATE INFECTION
     Route: 048
     Dates: start: 20060224

REACTIONS (3)
  - BONE PAIN [None]
  - ILL-DEFINED DISORDER [None]
  - PAIN IN EXTREMITY [None]
